FAERS Safety Report 6696206-1 (Version None)
Quarter: 2010Q2

REPORT INFORMATION
  Report Type: 
  Country: None (occurrence: None)
  Receive Date: 20100426
  Receipt Date: 20100415
  Transmission Date: 20101027
  Serious: Yes (Other)
  Sender: FDA-Public Use
  Company Number: US-AMGEN-QUU406356

PATIENT
  Age: 50 Year
  Sex: Female

DRUGS (3)
  1. ENBREL [Suspect]
     Indication: RHEUMATOID ARTHRITIS
     Dates: start: 20050101
  2. SYNTHROID [Concomitant]
  3. UNSPECIFIED ANTIHYPERTENSIVE AGENT [Concomitant]

REACTIONS (1)
  - AQUAGENIC PRURITUS [None]
